FAERS Safety Report 5583612-1 (Version None)
Quarter: 2008Q1

REPORT INFORMATION
  Report Type: 
  Country: None (occurrence: None)
  Receive Date: 20080107
  Receipt Date: 20080102
  Transmission Date: 20080703
  Serious: Yes (Other)
  Sender: FDA-Public Use
  Company Number: GB-MERCK-0801GBR00014

PATIENT
  Age: 68 Year
  Sex: Male
  Weight: 106 kg

DRUGS (7)
  1. EMEND [Suspect]
     Indication: VOMITING
     Route: 048
     Dates: start: 20071211, end: 20071212
  2. EMEND [Suspect]
     Indication: NAUSEA
     Route: 048
     Dates: start: 20071211, end: 20071212
  3. FLUOROURACIL [Concomitant]
     Indication: CHEMOTHERAPY
     Route: 042
     Dates: start: 20071211, end: 20071201
  4. CISPLATIN [Concomitant]
     Indication: CHEMOTHERAPY
     Route: 042
     Dates: start: 20071211
  5. DEXAMETHASONE [Concomitant]
     Indication: NAUSEA
     Route: 048
     Dates: start: 20071211, end: 20071201
  6. DEXAMETHASONE [Concomitant]
     Indication: VOMITING
     Route: 048
     Dates: start: 20071211, end: 20071201
  7. LANSOPRAZOLE [Concomitant]
     Route: 048

REACTIONS (1)
  - SINUS BRADYCARDIA [None]
